FAERS Safety Report 8100561-5 (Version None)
Quarter: 2012Q1

REPORT INFORMATION
  Report Type: 
  Country: None (occurrence: None)
  Receive Date: 20120129
  Receipt Date: 20111118
  Transmission Date: 20120608
  Serious: No
  Sender: FDA-Public Use
  Company Number: US-ABBOTT-11P-163-0875352-00

PATIENT
  Age: 36 Year
  Sex: Male

DRUGS (2)
  1. NALTREXONE [Concomitant]
     Indication: CROHN'S DISEASE
     Dosage: 5 MG - ONCE DAILY AT NIGHT
  2. HUMIRA [Suspect]
     Indication: CROHN'S DISEASE
     Dates: start: 20111001

REACTIONS (3)
  - NASOPHARYNGITIS [None]
  - UPPER RESPIRATORY TRACT CONGESTION [None]
  - OROPHARYNGEAL PAIN [None]
